FAERS Safety Report 17880314 (Version 2)
Quarter: 2020Q2

REPORT INFORMATION
  Report Type: Spontaneous
  Country: IT (occurrence: IT)
  Receive Date: 20200610
  Receipt Date: 20200617
  Transmission Date: 20200714
  Serious: Yes (Death, Other)
  Sender: FDA-Public Use
  Company Number: IT-PFIZER INC-2020221189

PATIENT
  Age: 54 Year
  Sex: Female

DRUGS (4)
  1. GEMCITABINE HYDROCHLORIDE. [Suspect]
     Active Substance: GEMCITABINE HYDROCHLORIDE
     Indication: OVARIAN CANCER
     Dosage: 800 MG/M2, CYCLIC (ON DAYS 1 AND 8)
     Dates: start: 201602, end: 201606
  2. BEVACIZUMAB. [Suspect]
     Active Substance: BEVACIZUMAB
     Dosage: 15 MG/KG, CYCLIC (ON DAY 1 EVERY 21 DAYS (22 CYCLES OVERALL))
     Dates: end: 201701
  3. BEVACIZUMAB. [Suspect]
     Active Substance: BEVACIZUMAB
     Indication: OVARIAN CANCER
     Dosage: 15 MG/KG, CYCLIC (SIX CYCLES)
  4. CARBOPLATIN. [Suspect]
     Active Substance: CARBOPLATIN
     Indication: OVARIAN CANCER
     Dosage: UNK, CYCLIC (AUC 4) ON DAY 1
     Dates: end: 201701

REACTIONS (2)
  - Intestinal obstruction [Recovered/Resolved]
  - BRCA2 gene mutation [Not Recovered/Not Resolved]

NARRATIVE: CASE EVENT DATE: 201702
